FAERS Safety Report 4322282-7 (Version None)
Quarter: 2004Q1

REPORT INFORMATION
  Report Type: 
  Country: None (occurrence: None)
  Receive Date: 20040319
  Receipt Date: 20040305
  Transmission Date: 20041129
  Serious: Yes (Other)
  Sender: FDA-Public Use
  Company Number: 2004015606

PATIENT
  Sex: Male
  Weight: 58.9676 kg

DRUGS (1)
  1. VIAGRA [Suspect]
     Indication: SEXUAL DYSFUNCTION
     Dosage: (PRN), ORAL
     Route: 048
     Dates: start: 20020801

REACTIONS (2)
  - DRUG EFFECT DECREASED [None]
  - PROSTATE CANCER STAGE I [None]
